FAERS Safety Report 9343969 (Version 2)
Quarter: 2014Q2

REPORT INFORMATION
  Report Type: Report from Study
  Country: JP (occurrence: JP)
  Receive Date: 20130612
  Receipt Date: 20140401
  Transmission Date: 20141212
  Serious: Yes (Death, Other)
  Sender: FDA-Public Use
  Company Number: PHHY2012JP053553

PATIENT
  Age: 73 Year
  Sex: Male
  Weight: 45 kg

DRUGS (3)
  1. ICL670A [Suspect]
     Indication: IRON OVERLOAD
     Dosage: 1000 MG DAILY
     Route: 048
     Dates: start: 20100831
  2. PREDNISOLONE [Suspect]
     Indication: APLASIA PURE RED CELL
     Dosage: 30 MG, UNK
     Route: 048
     Dates: start: 20101007, end: 20101103
  3. ALEVIATIN [Concomitant]
     Indication: PROPHYLAXIS
     Dosage: 250 MG, UNK
     Dates: start: 20101104

REACTIONS (5)
  - Cholangitis [Fatal]
  - Sepsis [Fatal]
  - Aplasia pure red cell [Not Recovered/Not Resolved]
  - Condition aggravated [Not Recovered/Not Resolved]
  - Renal impairment [Not Recovered/Not Resolved]
